FAERS Safety Report 21648652 (Version 1)
Quarter: 2022Q4

REPORT INFORMATION
  Report Type: Other
  Country: US (occurrence: None)
  Receive Date: 20221128
  Receipt Date: 20221128
  Transmission Date: 20230113
  Serious: Yes (Life-Threatening)
  Sender: FDA-Public Use
  Company Number: US-ROCHE-3224649

PATIENT
  Age: 73 Year
  Sex: Female

DRUGS (2)
  1. HEMLIBRA [Suspect]
     Active Substance: EMICIZUMAB-KXWH
     Indication: Haemophilia
     Dosage: INJECT 3MG/KG (132MG) SUBCUTANEOUSLY EVERY WEEK DRAW UP 0.7ML FROM 105MG VIAL IN ONE SYRINGE AND 0.9
     Route: 058
  2. HEMLIBRA [Suspect]
     Active Substance: EMICIZUMAB-KXWH
     Dosage: INJECT 3MG/KG (132MG) SUBCUTANEOUSLY EVERY WEEK DRAW UP 0.7ML FROM 105MG VIAL IN ONE SYRINGE AND 0.9
     Route: 058

REACTIONS (1)
  - Blood disorder [Unknown]
